FAERS Safety Report 9060685 (Version 1)
Quarter: 2013Q1

REPORT INFORMATION
  Report Type: Report from Study
  Country: US (occurrence: US)
  Receive Date: 20130204
  Receipt Date: 20130204
  Transmission Date: 20140127
  Serious: Yes (Hospitalization)
  Sender: FDA-Public Use
  Company Number: US-BAYER-2013-012483

PATIENT
  Age: 54 Year
  Sex: Female
  Weight: 54.42 kg

DRUGS (1)
  1. STIVARGA [Suspect]
     Indication: COLORECTAL CANCER
     Dosage: DAILY DOSE 160 MG
     Route: 048
     Dates: start: 20130114, end: 20130127

REACTIONS (3)
  - Erythema [None]
  - Oedema peripheral [None]
  - Pain in extremity [None]
